FAERS Safety Report 8581719-8 (Version None)
Quarter: 2012Q3

REPORT INFORMATION
  Report Type: 
  Country: None (occurrence: None)
  Receive Date: 20120801
  Receipt Date: 20120801
  Transmission Date: 20120928
  Serious: Yes (Other)
  Sender: FDA-Public Use
  Company Number: None

PATIENT
  Age: 25 Year
  Sex: Female
  Weight: 50.8029 kg

DRUGS (1)
  1. PRISTIQ [Suspect]
     Indication: ANXIETY
     Dates: start: 20120415, end: 20120720

REACTIONS (11)
  - FATIGUE [None]
  - ECONOMIC PROBLEM [None]
  - AMNESIA [None]
  - POOR PERSONAL HYGIENE [None]
  - ABNORMAL BEHAVIOUR [None]
  - ASTHENIA [None]
  - IMPULSE-CONTROL DISORDER [None]
  - MANIA [None]
  - DISTURBANCE IN ATTENTION [None]
  - CONFUSIONAL STATE [None]
  - HYPERSOMNIA [None]
